FAERS Safety Report 14239120 (Version 1)
Quarter: 2017Q4

REPORT INFORMATION
  Report Type: Spontaneous
  Country: US (occurrence: US)
  Receive Date: 20171127
  Receipt Date: 20171127
  Transmission Date: 20180321
  Serious: Yes (Hospitalization)
  Sender: FDA-Public Use
  Company Number: None

PATIENT
  Age: 34 Year
  Sex: Female
  Weight: 66.6 kg

DRUGS (1)
  1. MIRENA [Suspect]
     Active Substance: LEVONORGESTREL
     Indication: MENSTRUAL CYCLE MANAGEMENT
     Route: 067
     Dates: start: 20161219, end: 20171121

REACTIONS (7)
  - Headache [None]
  - Nausea [None]
  - Presyncope [None]
  - Seizure [None]
  - Cold sweat [None]
  - Pruritus [None]
  - Abdominal pain upper [None]

NARRATIVE: CASE EVENT DATE: 20171120
